FAERS Safety Report 10243510 (Version 1)
Quarter: 2014Q2

REPORT INFORMATION
  Report Type: Spontaneous
  Country: US (occurrence: US)
  Receive Date: 20140618
  Receipt Date: 20140618
  Transmission Date: 20141212
  Serious: No
  Sender: FDA-Public Use
  Company Number: US-009507513-1405USA003723

PATIENT
  Age: 2 Year
  Sex: Female
  Weight: 9.98 kg

DRUGS (1)
  1. COPPERTONE ULTRAGUARD CONTINUOUS SPRAY SPF 50 [Suspect]
     Indication: PRODUCT USED FOR UNKNOWN INDICATION
     Dosage: UNK, UNKNOWN
     Route: 061
     Dates: start: 20140417

REACTIONS (6)
  - Ocular hyperaemia [Recovering/Resolving]
  - Swelling [Recovering/Resolving]
  - Ocular discomfort [Recovering/Resolving]
  - Lacrimation increased [Recovering/Resolving]
  - Irritability [Unknown]
  - Accidental exposure to product [Unknown]
